FAERS Safety Report 13829737 (Version 1)
Quarter: 2017Q3

REPORT INFORMATION
  Report Type: Spontaneous
  Country: US (occurrence: US)
  Receive Date: 20170803
  Receipt Date: 20170803
  Transmission Date: 20171127
  Serious: No
  Sender: FDA-Public Use
  Company Number: US-AMGEN-USASP2017113878

PATIENT
  Age: 15 Year
  Sex: Female
  Weight: 61.22 kg

DRUGS (1)
  1. ENBREL [Suspect]
     Active Substance: ETANERCEPT
     Indication: JUVENILE IDIOPATHIC ARTHRITIS
     Dosage: 50 MG, QWK
     Route: 058
     Dates: start: 201706

REACTIONS (3)
  - Rash [Recovering/Resolving]
  - Product storage error [Unknown]
  - Exfoliative rash [Recovering/Resolving]

NARRATIVE: CASE EVENT DATE: 2017
